FAERS Safety Report 5652886-0 (Version None)
Quarter: 2008Q1

REPORT INFORMATION
  Report Type: 
  Country: None (occurrence: None)
  Receive Date: 20080306
  Receipt Date: 20080229
  Transmission Date: 20080703
  Serious: Yes (Hospitalization)
  Sender: FDA-Public Use
  Company Number: BE-WYE-G01173408

PATIENT
  Age: 73 Year
  Sex: Male

DRUGS (3)
  1. GEMTUZUMAB OZOGAMICIN [Suspect]
     Indication: LEUKAEMIA
     Dosage: 9 MG/M^2 EVERY
     Route: 042
     Dates: end: 20080101
  2. ZANTAC 150 [Concomitant]
  3. ZOVIRAX [Concomitant]

REACTIONS (2)
  - AGRANULOCYTOSIS [None]
  - PYREXIA [None]
